FAERS Safety Report 9785686 (Version 1)
Quarter: 2013Q4

REPORT INFORMATION
  Report Type: Spontaneous
  Country: ES (occurrence: None)
  Receive Date: 20131224
  Receipt Date: 20131224
  Transmission Date: 20140711
  Serious: Yes (Hospitalization)
  Sender: FDA-Public Use
  Company Number: AUR-APL-2013-10621

PATIENT
  Age: 75 Year
  Sex: Male

DRUGS (1)
  1. METFORMIN [Suspect]
     Indication: TYPE 2 DIABETES MELLITUS
     Dosage: 1 IN 24 HR

REACTIONS (12)
  - Metabolic acidosis [None]
  - Diarrhoea [None]
  - Dyspnoea [None]
  - Anuria [None]
  - Blood potassium increased [None]
  - Sinus tachycardia [None]
  - Electrocardiogram T wave peaked [None]
  - Bundle branch block right [None]
  - Continuous haemodiafiltration [None]
  - Drug level increased [None]
  - Lactic acidosis [None]
  - Contraindication to medical treatment [None]
